FAERS Safety Report 5466201-9 (Version None)
Quarter: 2007Q3

REPORT INFORMATION
  Report Type: 
  Country: None (occurrence: None)
  Receive Date: 20070919
  Receipt Date: 20070910
  Transmission Date: 20080115
  Serious: Yes (Death)
  Sender: FDA-Public Use
  Company Number: 2007P1000637

PATIENT
  Age: 34 Year
  Sex: Female

DRUGS (6)
  1. BUSULFAN (BUSULFAN) [Suspect]
     Indication: STEM CELL TRANSPLANT
     Dosage: 24 ML;QD;IV;  ;IV
     Route: 042
     Dates: start: 20070101, end: 20070101
  2. BUSULFAN (BUSULFAN) [Suspect]
     Indication: STEM CELL TRANSPLANT
     Dosage: 24 ML;QD;IV;  ;IV
     Route: 042
     Dates: start: 20070307, end: 20070308
  3. FLUDARABINE PHOSPHATE [Concomitant]
  4. VALPROATE SODIUM [Concomitant]
  5. NEUPOGEN [Concomitant]
  6. TACROLIMUS [Concomitant]

REACTIONS (4)
  - ENTEROCOCCAL INFECTION [None]
  - HISTIOCYTOSIS HAEMATOPHAGIC [None]
  - SEPSIS [None]
  - TRANSPLANT FAILURE [None]
